FAERS Safety Report 5876052-9 (Version None)
Quarter: 2008Q3

REPORT INFORMATION
  Report Type: 
  Country: None (occurrence: None)
  Receive Date: 20080905
  Receipt Date: 20080821
  Transmission Date: 20090109
  Serious: Yes (Death, Hospitalization)
  Sender: FDA-Public Use
  Company Number: 2008S1000318

PATIENT
  Age: 70 Year
  Sex: Female

DRUGS (13)
  1. ACITRETIN [Suspect]
     Indication: PSORIASIS
     Dosage: 25 MG; QD; PO,; PO
     Route: 048
     Dates: start: 20080524, end: 20080709
  2. CITALOPRAM HYDROBROMIDE [Concomitant]
  3. AMLODIPINE [Concomitant]
  4. GLUCOSAMINE [Concomitant]
  5. ZOPICLONE [Concomitant]
  6. DALTEPARIN SODIUM [Concomitant]
  7. HYDROXYZINE [Concomitant]
  8. ALBUTEROL SPIROS [Concomitant]
  9. ATROVENT [Concomitant]
  10. PREDNISOLONE [Concomitant]
  11. FLOXACILLIN SODIUM [Concomitant]
  12. AMOXICILLIN [Concomitant]
  13. CROMOLYN SODIUM [Concomitant]

REACTIONS (7)
  - ALANINE AMINOTRANSFERASE INCREASED [None]
  - BLOOD ALBUMIN DECREASED [None]
  - CHRONIC OBSTRUCTIVE PULMONARY DISEASE [None]
  - DISEASE COMPLICATION [None]
  - NAUSEA [None]
  - RESPIRATORY FAILURE [None]
  - SPIDER NAEVUS [None]
